FAERS Safety Report 25732921 (Version 2)
Quarter: 2025Q3

REPORT INFORMATION
  Report Type: Spontaneous
  Country: EU (occurrence: EU)
  Receive Date: 20250828
  Receipt Date: 20250914
  Transmission Date: 20251020
  Serious: Yes (Death, Life-Threatening, Hospitalization, Other)
  Sender: ALEXION PHARMACEUTICALS
  Company Number: EU-KRKA-DE2025K15187SPO

PATIENT
  Age: 70 Year
  Sex: Female

DRUGS (7)
  1. XIGDUO XR [Suspect]
     Active Substance: DAPAGLIFLOZIN PROPANEDIOL\METFORMIN HYDROCHLORIDE
  2. CANDESARTAN CILEXETIL\HYDROCHLOROTHIAZIDE [Suspect]
     Active Substance: CANDESARTAN CILEXETIL\HYDROCHLOROTHIAZIDE
  3. SITAGLIPTIN [Suspect]
     Active Substance: SITAGLIPTIN
  4. NEOSTIGMINE [Suspect]
     Active Substance: NEOSTIGMINE
     Dates: start: 20250329, end: 20250329
  5. LEVETIRACETAM [Concomitant]
     Active Substance: LEVETIRACETAM
     Route: 065
  6. LACOSAMIDE [Concomitant]
     Active Substance: LACOSAMIDE
     Route: 065
  7. VALPROIC ACID [Concomitant]
     Active Substance: VALPROIC ACID
     Route: 065

REACTIONS (12)
  - Death [Fatal]
  - Toxicity to various agents [Fatal]
  - Cerebrovascular accident [Fatal]
  - Status epilepticus [Fatal]
  - Hypertensive crisis [Fatal]
  - Atrioventricular block complete [Fatal]
  - Hypertensive heart disease [Fatal]
  - Tricuspid valve incompetence [Fatal]
  - Cardiac aneurysm [Fatal]
  - Degenerative aortic valve disease [Fatal]
  - Type 2 diabetes mellitus [Fatal]
  - Cardiac arrest [Recovered/Resolved]

NARRATIVE: CASE EVENT DATE: 20250301
